FAERS Safety Report 23487364 (Version 2)
Quarter: 2024Q1

REPORT INFORMATION
  Report Type: Spontaneous
  Country: JP (occurrence: None)
  Receive Date: 20240206
  Receipt Date: 20240315
  Transmission Date: 20240410
  Serious: Yes (Other)
  Sender: FDA-Public Use
  Company Number: 2024A026790

PATIENT
  Age: 78 Year
  Sex: Male
  Weight: 53 kg

DRUGS (16)
  1. ONDEXXYA [Suspect]
     Active Substance: ANDEXANET ALFA
     Route: 042
     Dates: start: 20231126, end: 20231126
  2. EDOXABAN TOSYLATE [Concomitant]
     Active Substance: EDOXABAN TOSYLATE
     Dosage: DOSE UNKNOWN
     Route: 048
  3. HEPARIN SODIUM [Concomitant]
     Active Substance: HEPARIN SODIUM
     Dosage: 15:16 8000 UNITS, 15:23 18000 UNITS, 15:35 10000 UNITS
     Route: 065
  4. ARGATROBAN [Concomitant]
     Active Substance: ARGATROBAN
     Dosage: 15:42 20 MG
     Route: 065
     Dates: start: 20231126
  5. BICANATE [Concomitant]
     Active Substance: CALCIUM CHLORIDE\MAGNESIUM CHLORIDE\POTASSIUM CHLORIDE\SODIUM BICARBONATE\SODIUM CHLORIDE\TRISODIUM
     Dosage: DOSE UNKNOWN
     Route: 041
  6. FENTANYL [Concomitant]
     Active Substance: FENTANYL\FENTANYL CITRATE
     Dosage: DOSE UNKNOWN
     Route: 065
  7. REMIFENTANIL [Concomitant]
     Active Substance: REMIFENTANIL
     Dosage: DOSE UNKNOWN
     Route: 042
  8. PHENYLEPHRINE HYDROCHLORIDE [Concomitant]
     Active Substance: PHENYLEPHRINE HYDROCHLORIDE
     Dosage: DOSE UNKNOWN
     Route: 065
  9. ROCURONIUM BROMIDE [Concomitant]
     Active Substance: ROCURONIUM BROMIDE
     Dosage: DOSE UNKNOWN
     Route: 042
  10. MIDAZOLAM [Concomitant]
     Active Substance: MIDAZOLAM
     Dosage: DOSE UNKNOWN
     Route: 065
  11. EPHEDRINE HYDROCHLORIDE [Concomitant]
     Active Substance: EPHEDRINE HYDROCHLORIDE
     Dosage: DOSE UNKNOWN
     Route: 065
  12. ULINASTATIN [Concomitant]
     Active Substance: ULINASTATIN
     Dosage: DOSE UNKNOWN
     Route: 065
  13. SOLU-MEDROL [Concomitant]
     Active Substance: METHYLPREDNISOLONE SODIUM SUCCINATE
     Dosage: DOSE UNKNOWN
     Route: 065
  14. FAMOTIDINE [Concomitant]
     Active Substance: FAMOTIDINE
     Dosage: DOSE UNKNOWN
     Route: 042
  15. TRANEXAMIC ACID [Concomitant]
     Active Substance: TRANEXAMIC ACID
     Dosage: DOSE UNKNOWN
     Route: 065
  16. CEFAZOLIN SODIUM [Concomitant]
     Active Substance: CEFAZOLIN SODIUM
     Dosage: DOSE UNKNOWN
     Route: 041

REACTIONS (1)
  - Heparin resistance [Recovered/Resolved]

NARRATIVE: CASE EVENT DATE: 20231126
